FAERS Safety Report 6824708-3 (Version None)
Quarter: 2010Q3

REPORT INFORMATION
  Report Type: 
  Country: None (occurrence: None)
  Receive Date: 20100708
  Receipt Date: 20070326
  Transmission Date: 20110219
  Serious: No
  Sender: FDA-Public Use
  Company Number: US-PFIZER INC-2006131598

PATIENT
  Age: 42 Year
  Sex: Female
  Weight: 90.7 kg

DRUGS (3)
  1. CHANTIX [Suspect]
     Indication: EX-TOBACCO USER
     Dates: start: 20060926
  2. ALL OTHER THERAPEUTIC PRODUCTS [Concomitant]
  3. FLAXSEED OIL [Concomitant]

REACTIONS (1)
  - DIARRHOEA [None]
